FAERS Safety Report 5918741-3 (Version None)
Quarter: 2008Q4

REPORT INFORMATION
  Report Type: 
  Country: None (occurrence: None)
  Receive Date: 20081015
  Receipt Date: 20080715
  Transmission Date: 20090506
  Serious: No
  Sender: FDA-Public Use
  Company Number: US-ASTRAZENECA-2008UW14227

PATIENT
  Age: 58 Year
  Sex: Female
  Weight: 50.8 kg

DRUGS (3)
  1. SYMBICORT [Suspect]
     Indication: ASTHMA
     Dosage: 160/4.5
     Route: 055
     Dates: start: 20080710
  2. HORMOME REPLACEMENT THERAPY [Concomitant]
  3. ALBUTEROL [Concomitant]

REACTIONS (2)
  - BRONCHITIS [None]
  - THROAT IRRITATION [None]
